FAERS Safety Report 13831809 (Version 1)
Quarter: 2017Q3

REPORT INFORMATION
  Report Type: Spontaneous
  Country: US (occurrence: US)
  Receive Date: 20170803
  Receipt Date: 20170803
  Transmission Date: 20171127
  Serious: Yes (Other)
  Sender: FDA-Public Use
  Company Number: US-ROCHE-677640

PATIENT
  Age: 47 Year
  Sex: Female

DRUGS (2)
  1. MOBIC [Concomitant]
     Active Substance: MELOXICAM
     Indication: JUVENILE IDIOPATHIC ARTHRITIS
     Route: 048
  2. BONIVA [Suspect]
     Active Substance: IBANDRONATE SODIUM
     Indication: OSTEOPOROSIS
     Route: 048
     Dates: start: 20090512, end: 200910

REACTIONS (5)
  - Abdominal pain upper [Unknown]
  - Pain [Unknown]
  - Arthralgia [Unknown]
  - Musculoskeletal stiffness [Unknown]
  - Dyspepsia [Recovering/Resolving]

NARRATIVE: CASE EVENT DATE: 200905
